FAERS Safety Report 7446199-4 (Version None)
Quarter: 2011Q2

REPORT INFORMATION
  Report Type: 
  Country: None (occurrence: None)
  Receive Date: 20110429
  Receipt Date: 20110416
  Transmission Date: 20111010
  Serious: No
  Sender: FDA-Public Use
  Company Number: US-B.I. PHARMACEUTICALS,INC./RIDGEFIELD-2011-BP-11033BP

PATIENT
  Sex: Male

DRUGS (2)
  1. ZANTAC 150 [Suspect]
     Indication: DYSPEPSIA
     Dosage: 150 MG
     Route: 048
     Dates: start: 20110414
  2. ROLAIDS [Concomitant]
     Indication: DYSPEPSIA

REACTIONS (3)
  - DYSPNOEA [None]
  - DIZZINESS [None]
  - ABDOMINAL PAIN UPPER [None]
